FAERS Safety Report 10064452 (Version 1)
Quarter: 2014Q2

REPORT INFORMATION
  Report Type: Spontaneous
  Country: FR (occurrence: None)
  Receive Date: 20140404
  Receipt Date: 20140404
  Transmission Date: 20141212
  Serious: Yes (Hospitalization)
  Sender: FDA-Public Use
  Company Number: SYM-2014-19142

PATIENT
  Age: 78 Year
  Sex: Male

DRUGS (8)
  1. TILDIEM [Suspect]
     Indication: PRODUCT USED FOR UNKNOWN INDICATION
     Route: 048
  2. PLAVIX [Suspect]
     Indication: PRODUCT USED FOR UNKNOWN INDICATION
     Route: 048
     Dates: start: 201212, end: 20130504
  3. COUMADINE (WARFARIN SODIUM) (WARFARIN SODIUM) [Concomitant]
  4. HYTACAND (BLOPRESS PLUS) (HYDROCHLOROTHIAZIDE, CANDESARTAN CILEXETIL) [Concomitant]
  5. LANTUS (INSULIN GLARGINE) (INSULIN GLARGINE) [Concomitant]
  6. CRESTOR (ROSUVASTATIN CALCIUM) (ROSUVASTATIN CALCIUM) [Concomitant]
  7. NOVONORM (REPAGLINIDE) (REPAGLINIDE) [Concomitant]
  8. ADENURIC (FEBUXOSTAT) (FEBUXOSTATA) [Concomitant]

REACTIONS (12)
  - Drug interaction [None]
  - Ischaemic stroke [None]
  - Blood pressure increased [None]
  - Atrial flutter [None]
  - Ejection fraction decreased [None]
  - Cerebral haemorrhage [None]
  - Cerebral hypoperfusion [None]
  - Carotid artery occlusion [None]
  - Atrial fibrillation [None]
  - Dilatation ventricular [None]
  - Pulmonary hypertension [None]
  - Drug resistance [None]
